FAERS Safety Report 4544508-7 (Version None)
Quarter: 2004Q4

REPORT INFORMATION
  Report Type: 
  Country: None (occurrence: None)
  Receive Date: 20041230
  Receipt Date: 20041221
  Transmission Date: 20050328
  Serious: Yes (Death, Hospitalization)
  Sender: FDA-Public Use
  Company Number: 200416160BCC

PATIENT
  Age: 66 Year
  Sex: Male
  Weight: 95.2554 kg

DRUGS (9)
  1. ALEVE [Suspect]
     Indication: HEADACHE
     Dosage: 220 MG, ONCE, ORAL
     Route: 048
     Dates: start: 20000413
  2. DISALCID [Concomitant]
  3. ENBREL [Concomitant]
  4. PREDNISONE [Concomitant]
  5. PROPOXYPHENE NAPSYLATE W/ ACETAMINOPHEN [Concomitant]
  6. METOPROLOL [Concomitant]
  7. .. [Concomitant]
  8. . [Concomitant]
  9. . [Concomitant]

REACTIONS (5)
  - ANOXIC ENCEPHALOPATHY [None]
  - FATIGUE [None]
  - FEELING ABNORMAL [None]
  - HEADACHE [None]
  - MYOCARDIAL INFARCTION [None]
